FAERS Safety Report 7948883-2 (Version None)
Quarter: 2011Q4

REPORT INFORMATION
  Report Type: 
  Country: None (occurrence: None)
  Receive Date: 20111130
  Receipt Date: 20111123
  Transmission Date: 20120403
  Serious: Yes (Life-Threatening, Disabling, Other)
  Sender: FDA-Public Use
  Company Number: PHHY2011AU81521

PATIENT
  Sex: Female

DRUGS (8)
  1. TASIGNA [Suspect]
     Indication: CHRONIC MYELOID LEUKAEMIA
     Dosage: 400 MG, DAILY
     Route: 048
     Dates: start: 20080501, end: 20081101
  2. ASPIRIN [Concomitant]
     Indication: PERIPHERAL VASCULAR DISORDER
  3. CLOPIDOGREL [Concomitant]
     Indication: PERIPHERAL VASCULAR DISORDER
     Dosage: 75 MG, DAILY
  4. ASPIRIN [Concomitant]
     Indication: MYOCARDIAL ISCHAEMIA
     Dosage: 100 MG, DAILY
  5. TASIGNA [Suspect]
     Dosage: 400 MG, BID
     Route: 048
     Dates: start: 20081101, end: 20110501
  6. TASIGNA [Suspect]
     Dosage: 600 MG, DAILY
     Dates: start: 20110501, end: 20111001
  7. IRBESARTAN [Concomitant]
     Dosage: 300 MG DAILY
  8. ROSUVASTATIN [Concomitant]
     Dosage: 10 MG, DAILY

REACTIONS (5)
  - ANGINA PECTORIS [None]
  - COLD SWEAT [None]
  - PALLOR [None]
  - MYOCARDIAL ISCHAEMIA [None]
  - PERIPHERAL VASCULAR DISORDER [None]
